FAERS Safety Report 9773311 (Version 3)
Quarter: 2014Q1

REPORT INFORMATION
  Report Type: Spontaneous
  Country: US (occurrence: US)
  Receive Date: 20131219
  Receipt Date: 20140305
  Transmission Date: 20141002
  Serious: Yes (Other)
  Sender: FDA-Public Use
  Company Number: US-FRI-1000022993

PATIENT
  Age: 64 Year
  Sex: Female

DRUGS (14)
  1. VIIBRYD [Suspect]
     Indication: DEPRESSION
     Dosage: 10 MG
     Route: 048
     Dates: start: 20110810
  2. VIIBRYD [Suspect]
     Indication: ANXIETY
     Dosage: 20 MG
     Route: 048
  3. VIIBRYD [Suspect]
     Indication: POST-TRAUMATIC STRESS DISORDER
  4. VIIBRYD [Suspect]
     Indication: DEPRESSION
     Dosage: 40 MG
     Route: 048
  5. VIIBRYD [Suspect]
     Indication: ANXIETY
     Dosage: 10 MG
     Route: 048
  6. VIIBRYD [Suspect]
     Indication: POST-TRAUMATIC STRESS DISORDER
     Dosage: 20 MG
     Route: 048
  7. PROLIA [Suspect]
     Indication: OSTEOPOROSIS
  8. KLONOPIN [Suspect]
     Indication: INSOMNIA
     Dosage: 0.5 MG
  9. NAPROSYN [Concomitant]
  10. SKELAXIN [Concomitant]
  11. TAPAZOLE [Concomitant]
     Indication: HYPERTHYROIDISM
  12. TRAZODONE [Concomitant]
     Indication: DEPRESSION
     Dosage: 50 MG
  13. TRAZODONE [Concomitant]
     Indication: ANXIETY
  14. LEXAPRO [Concomitant]
     Indication: DEPRESSION
     Dosage: 20 MG

REACTIONS (8)
  - Sinusitis [Recovered/Resolved]
  - Influenza [Recovered/Resolved]
  - Rash [Recovering/Resolving]
  - Herpes zoster [Recovered/Resolved]
  - Pruritus [Recovering/Resolving]
  - Lethargy [Recovering/Resolving]
  - Inflammation [Recovering/Resolving]
  - Off label use [Not Recovered/Not Resolved]
